FAERS Safety Report 6842941-1 (Version None)
Quarter: 2010Q3

REPORT INFORMATION
  Report Type: 
  Country: None (occurrence: None)
  Receive Date: 20100714
  Receipt Date: 20070810
  Transmission Date: 20110219
  Serious: No
  Sender: FDA-Public Use
  Company Number: US-PFIZER INC-2007067601

PATIENT
  Sex: Female
  Weight: 56.8 kg

DRUGS (5)
  1. CHANTIX [Suspect]
     Indication: SMOKING CESSATION THERAPY
     Route: 048
     Dates: start: 20070806
  2. NEURONTIN [Concomitant]
  3. PROTONIX [Concomitant]
  4. HUMALOG [Concomitant]
  5. HUMULIN R [Concomitant]

REACTIONS (2)
  - DIZZINESS [None]
  - MUSCLE SPASMS [None]
